FAERS Safety Report 6814927-4 (Version None)
Quarter: 2010Q3

REPORT INFORMATION
  Report Type: 
  Country: None (occurrence: None)
  Receive Date: 20100702
  Receipt Date: 20100628
  Transmission Date: 20110219
  Serious: Yes (Other)
  Sender: FDA-Public Use
  Company Number: JP-ROCHE-712195

PATIENT
  Age: 57 Year
  Sex: Female

DRUGS (4)
  1. AVASTIN [Suspect]
     Route: 065
     Dates: start: 20091201, end: 20100101
  2. TARCEVA [Suspect]
     Route: 065
     Dates: start: 20090701
  3. CARBOPLATIN [Suspect]
     Route: 065
     Dates: start: 20091201
  4. DOCETAXEL [Suspect]
     Route: 065
     Dates: start: 20091201

REACTIONS (2)
  - PALMAR-PLANTAR ERYTHRODYSAESTHESIA SYNDROME [None]
  - THERAPEUTIC RESPONSE DECREASED [None]
